FAERS Safety Report 16122181 (Version 5)
Quarter: 2019Q2

REPORT INFORMATION
  Report Type: Report from Study
  Country: BR (occurrence: BR)
  Receive Date: 20190327
  Receipt Date: 20190412
  Transmission Date: 20190711
  Serious: Yes (Other)
  Sender: FDA-Public Use
  Company Number: BR-ROCHE-2270896

PATIENT
  Age: 48 Year
  Sex: Female
  Weight: 50 kg

DRUGS (6)
  1. PARACETAMOL [Concomitant]
     Active Substance: ACETAMINOPHEN
  2. LEXOTAN [Suspect]
     Active Substance: BROMAZEPAM
     Indication: DEPRESSION
     Route: 065
  3. RIVOTRIL [Suspect]
     Active Substance: CLONAZEPAM
     Indication: SLEEP DISORDER THERAPY
     Route: 065
  4. CORTISONE [Suspect]
     Active Substance: CORTISONE\HYDROCORTISONE
     Indication: PRODUCT USED FOR UNKNOWN INDICATION
     Route: 065
  5. OCREVUS [Suspect]
     Active Substance: OCRELIZUMAB
     Indication: MULTIPLE SCLEROSIS
     Dosage: SECOND INFUSION: 06/MAR/2019
     Route: 042
     Dates: start: 20190219
  6. PRIMID [Concomitant]
     Indication: TREMOR
     Route: 065

REACTIONS (16)
  - Muscle spasms [Recovered/Resolved]
  - Fatigue [Recovered/Resolved]
  - Paraesthesia [Unknown]
  - Sensory loss [Unknown]
  - Headache [Recovered/Resolved]
  - Candida infection [Recovered/Resolved]
  - Hypoaesthesia [Recovered/Resolved]
  - Intentional product use issue [Unknown]
  - Musculoskeletal stiffness [Unknown]
  - Hemiplegia [Recovered/Resolved]
  - Discomfort [Recovered/Resolved]
  - Reflexes abnormal [Recovered/Resolved]
  - Multiple sclerosis [Recovered/Resolved]
  - Off label use [Unknown]
  - Balance disorder [Unknown]
  - White blood cell count decreased [Recovered/Resolved]

NARRATIVE: CASE EVENT DATE: 20190219
